FAERS Safety Report 6394625-4 (Version None)
Quarter: 2009Q4

REPORT INFORMATION
  Report Type: 
  Country: None (occurrence: None)
  Receive Date: 20091009
  Receipt Date: 20090930
  Transmission Date: 20100525
  Serious: Yes (Other)
  Sender: FDA-Public Use
  Company Number: US-ROCHE-659807

PATIENT
  Age: 62 Year
  Sex: Female

DRUGS (3)
  1. XENICAL [Suspect]
     Indication: WEIGHT CONTROL
     Route: 065
  2. ALLI [Suspect]
     Indication: WEIGHT CONTROL
     Route: 065
  3. BENICAR [Concomitant]

REACTIONS (2)
  - OCULAR VASCULAR DISORDER [None]
  - WEIGHT INCREASED [None]
